FAERS Safety Report 20771526 (Version 2)
Quarter: 2025Q3

REPORT INFORMATION
  Report Type: Spontaneous
  Country: GB (occurrence: GB)
  Receive Date: 20220430
  Receipt Date: 20250825
  Transmission Date: 20251020
  Serious: Yes (Hospitalization, Other)
  Sender: AUROBINDO
  Company Number: GB-MLMSERVICE-20220411-3489004-1

PATIENT
  Age: 55 Year
  Sex: Male

DRUGS (20)
  1. PHENYTOIN [Interacting]
     Active Substance: PHENYTOIN
     Indication: Seizure
     Dosage: 125 MILLIGRAM, ONCE A DAY (MORNING)
     Route: 065
  2. PHENYTOIN [Interacting]
     Active Substance: PHENYTOIN
     Dosage: 150 MILLIGRAM, ONCE A DAY (NIGHT)
     Route: 065
  3. PHENYTOIN [Interacting]
     Active Substance: PHENYTOIN
     Dosage: 100 MILLIGRAM, 3 TIMES A DAY
     Route: 065
  4. VALPROATE SODIUM [Interacting]
     Active Substance: VALPROATE SODIUM
     Indication: Seizure
     Dosage: 1600 MILLIGRAM, ONCE A DAY (NIGHT)
     Route: 065
  5. VALPROATE SODIUM [Interacting]
     Active Substance: VALPROATE SODIUM
     Dosage: 500 MILLIGRAM, TWO TIMES A DAY
     Route: 065
  6. VALPROATE SODIUM [Interacting]
     Active Substance: VALPROATE SODIUM
     Dosage: 1600 MILLIGRAM, ONCE A DAY (MORNING)
     Route: 065
  7. VALPROATE SODIUM [Interacting]
     Active Substance: VALPROATE SODIUM
     Dosage: 800 MILLIGRAM, ONCE A DAY (EVENING)
     Route: 065
  8. VALPROATE SODIUM [Interacting]
     Active Substance: VALPROATE SODIUM
     Route: 065
  9. VALPROATE SODIUM [Interacting]
     Active Substance: VALPROATE SODIUM
     Dosage: 1600 MILLIGRAM, ONCE A DAY
     Route: 065
  10. VALPROATE SODIUM [Interacting]
     Active Substance: VALPROATE SODIUM
     Dosage: 800 MILLIGRAM, ONCE A DAY (MORNING)
     Route: 065
  11. VALPROATE SODIUM [Interacting]
     Active Substance: VALPROATE SODIUM
     Dosage: 300 MILLIGRAM, TWO TIMES A DAY
     Route: 065
  12. LAMOTRIGINE [Concomitant]
     Active Substance: LAMOTRIGINE
     Indication: Seizure
     Dosage: 150 MILLIGRAM, TWO TIMES A DAY
     Route: 065
  13. LAMOTRIGINE [Concomitant]
     Active Substance: LAMOTRIGINE
     Dosage: 175 MILLIGRAM, TWO TIMES A DAY
     Route: 065
  14. FOLIC ACID [Concomitant]
     Active Substance: FOLIC ACID
     Indication: Product used for unknown indication
     Route: 065
  15. LEVETIRACETAM [Concomitant]
     Active Substance: LEVETIRACETAM
     Indication: Seizure
     Dosage: 1.5 GRAM, TWO TIMES A DAY
     Route: 065
  16. THIAMINE [Concomitant]
     Active Substance: THIAMINE
     Indication: Product used for unknown indication
     Route: 065
  17. LEVOCARNITINE [Concomitant]
     Active Substance: LEVOCARNITINE
     Indication: Product used for unknown indication
     Route: 042
  18. LACOSAMIDE [Concomitant]
     Active Substance: LACOSAMIDE
     Indication: Product used for unknown indication
     Dosage: 100 MILLIGRAM, TWO TIMES A DAY
     Route: 065
  19. LACOSAMIDE [Concomitant]
     Active Substance: LACOSAMIDE
     Route: 065
  20. LACOSAMIDE [Concomitant]
     Active Substance: LACOSAMIDE
     Route: 065

REACTIONS (5)
  - Anticonvulsant drug level increased [Recovered/Resolved]
  - Hyperammonaemic encephalopathy [Recovered/Resolved]
  - Drug interaction [Recovered/Resolved]
  - Toxicity to various agents [Recovered/Resolved]
  - Drug level below therapeutic [Recovered/Resolved]
